FAERS Safety Report 8376395-3 (Version None)
Quarter: 2012Q2

REPORT INFORMATION
  Report Type: 
  Country: None (occurrence: None)
  Receive Date: 20120522
  Receipt Date: 20120508
  Transmission Date: 20120825
  Serious: Yes (Other)
  Sender: FDA-Public Use
  Company Number: US-ASTRAZENECA-2012SE29900

PATIENT
  Age: 57 Year
  Sex: Male

DRUGS (9)
  1. GABAPENTIN [Suspect]
     Route: 048
  2. SPIRONOLACTONE [Suspect]
     Route: 048
     Dates: start: 20120216
  3. FLEXERIL [Suspect]
     Route: 048
  4. SPIRONOLACTONE [Suspect]
     Route: 048
  5. ATENOLOL [Suspect]
     Route: 048
  6. TRAMADOL HYDROCHLORIDE [Suspect]
     Route: 048
  7. NEXIUM [Suspect]
     Route: 048
  8. LISINOPRIL [Suspect]
     Route: 048
  9. LISINOPRIL [Suspect]
     Route: 048
     Dates: start: 20120127

REACTIONS (13)
  - PANCYTOPENIA [None]
  - DIVERTICULUM [None]
  - CHOLELITHIASIS [None]
  - VARICES OESOPHAGEAL [None]
  - OBESITY [None]
  - SLEEP APNOEA SYNDROME [None]
  - CIRRHOSIS ALCOHOLIC [None]
  - ALCOHOL ABUSE [None]
  - NICOTINE DEPENDENCE [None]
  - ERECTILE DYSFUNCTION [None]
  - HEPATITIS C [None]
  - OSTEOARTHRITIS [None]
  - GASTROOESOPHAGEAL REFLUX DISEASE [None]
